FAERS Safety Report 10420495 (Version 1)
Quarter: 2014Q2

REPORT INFORMATION
  Report Type: Spontaneous
  Country: US (occurrence: None)
  Receive Date: 20140626
  Receipt Date: 20140626
  Transmission Date: 20141212
  Serious: Yes (Death)
  Sender: FDA-Public Use
  Company Number: 2014020122

PATIENT
  Age: 32 Year
  Sex: Female

DRUGS (7)
  1. MEPROBAMATE (MEPROBAMATE) [Suspect]
  2. METHADONE (METHADONE) [Suspect]
  3. CLONAZEPAM [Suspect]
  4. CYCLOBENZAPRINE (CYCLOBENZAPRINE) [Suspect]
  5. OXCARBAZEPINE (OXCARBAZEPINE) [Suspect]
  6. TRAZODONE (TRAZODONE) [Suspect]
  7. OXYCODONE (OXYCODONE) [Suspect]

REACTIONS (1)
  - Drug abuse [None]
